FAERS Safety Report 5507951-5 (Version None)
Quarter: 2007Q4

REPORT INFORMATION
  Report Type: 
  Country: None (occurrence: None)
  Receive Date: 20071106
  Receipt Date: 20071026
  Transmission Date: 20080405
  Serious: Yes (Other)
  Sender: FDA-Public Use
  Company Number: FR-PFIZER INC-2007011794

PATIENT
  Sex: Female
  Weight: 69 kg

DRUGS (9)
  1. REVATIO [Suspect]
     Indication: PULMONARY HYPERTENSION
     Route: 048
  2. REVATIO [Suspect]
     Indication: DYSPNOEA
  3. ILOPROST [Suspect]
     Indication: PULMONARY HYPERTENSION
  4. MYCOPHENOLATE MOFETIL [Concomitant]
     Route: 048
  5. TACROLIMUS [Concomitant]
     Route: 048
     Dates: start: 20000901
  6. PREDNISONE [Concomitant]
     Route: 048
     Dates: start: 20000901
  7. OMEPRAZOLE [Concomitant]
     Route: 048
     Dates: start: 20000901
  8. FUROSEMIDE [Concomitant]
     Route: 048
     Dates: start: 20000901
  9. INSULIN [Concomitant]
     Route: 042

REACTIONS (7)
  - CARDIAC FAILURE [None]
  - DILATATION VENTRICULAR [None]
  - DRUG INEFFECTIVE [None]
  - ECCHYMOSIS [None]
  - EJECTION FRACTION DECREASED [None]
  - GENERAL PHYSICAL CONDITION ABNORMAL [None]
  - HAEMORRHAGE [None]
